APPROVED DRUG PRODUCT: DEXAMETHASONE SODIUM PHOSPHATE
Active Ingredient: DEXAMETHASONE SODIUM PHOSPHATE
Strength: EQ 10MG PHOSPHATE/ML
Dosage Form/Route: INJECTABLE;INJECTION
Application: A217797 | Product #001 | TE Code: AP
Applicant: MICRO LABS LTD
Approved: Mar 27, 2024 | RLD: No | RS: No | Type: RX